FAERS Safety Report 16932998 (Version 1)
Quarter: 2019Q4

REPORT INFORMATION
  Report Type: Report from Study
  Country: None (occurrence: US)
  Receive Date: 20191018
  Receipt Date: 20191018
  Transmission Date: 20200122
  Serious: Yes (Death)
  Sender: FDA-Public Use
  Company Number: US-ABBVIE-19K-163-2968905-00

PATIENT
  Sex: Male

DRUGS (3)
  1. AZACITIDINE. [Concomitant]
     Active Substance: AZACITIDINE
     Indication: PRODUCT USED FOR UNKNOWN INDICATION
  2. VENCLEXTA [Suspect]
     Active Substance: VENETOCLAX
     Indication: MYELODYSPLASTIC SYNDROME
  3. VENCLEXTA [Suspect]
     Active Substance: VENETOCLAX
     Indication: BRAIN NEOPLASM
     Route: 048
     Dates: start: 20180318

REACTIONS (2)
  - Lung disorder [Fatal]
  - Off label use [Unknown]
